FAERS Safety Report 10262404 (Version 2)
Quarter: 2014Q2

REPORT INFORMATION
  Report Type: Report from Study
  Country: FR (occurrence: FR)
  Receive Date: 20140626
  Receipt Date: 20140626
  Transmission Date: 20141212
  Serious: Yes (Hospitalization, Other)
  Sender: FDA-Public Use
  Company Number: FR-VERTEX PHARMACEUTICALS INC-AE-2011-000213

PATIENT
  Age: 61 Year
  Sex: Male
  Weight: 64 kg

DRUGS (13)
  1. VX-950 (TELAPREVIR) [Suspect]
     Indication: HEPATITIS C
     Dosage: UNK
     Route: 048
     Dates: start: 20110220, end: 20110513
  2. NEORECORMON [Concomitant]
     Indication: ANAEMIA
     Route: 058
     Dates: start: 20110323, end: 20110504
  3. RIBAVIRIN [Concomitant]
     Indication: HEPATITIS C
     Route: 048
     Dates: start: 20110220
  4. RIBAVIRIN [Concomitant]
     Route: 048
     Dates: start: 20110320, end: 201106
  5. PEGASYS [Concomitant]
     Indication: HEPATITIS C
     Route: 058
     Dates: start: 20110220
  6. PEGASYS [Concomitant]
     Route: 058
     Dates: start: 20110320, end: 201106
  7. LEVOTHYROX [Concomitant]
     Indication: HYPOTHYROIDISM
     Route: 048
  8. EPREX [Concomitant]
     Indication: ANAEMIA
  9. ALDACTONE [Concomitant]
     Indication: HYPERALDOSTERONISM
  10. LASILIX [Concomitant]
     Indication: DIURETIC THERAPY
  11. LOVENOX [Concomitant]
     Indication: ANTICOAGULANT THERAPY
     Route: 058
  12. DIFFU K [Concomitant]
     Indication: HYPOKALAEMIA
  13. TRANSIPEG [Concomitant]
     Indication: HYPOKALAEMIA

REACTIONS (4)
  - Rash [Unknown]
  - Toxic skin eruption [Recovered/Resolved with Sequelae]
  - Staphylococcal infection [Recovered/Resolved]
  - Inappropriate schedule of drug administration [Unknown]
